FAERS Safety Report 5671146-5 (Version None)
Quarter: 2008Q1

REPORT INFORMATION
  Report Type: 
  Country: None (occurrence: None)
  Receive Date: 20080318
  Receipt Date: 20080305
  Transmission Date: 20080703
  Serious: Yes (Hospitalization)
  Sender: FDA-Public Use
  Company Number: CA-ELI_LILLY_AND_COMPANY-CA200803001144

PATIENT
  Age: 75 Year
  Sex: Female

DRUGS (1)
  1. FORTEO [Suspect]
     Indication: OSTEOPOROSIS
     Dosage: 20 UG, DAILY (1/D)
     Route: 058
     Dates: start: 20070827

REACTIONS (6)
  - COUGH [None]
  - DECREASED APPETITE [None]
  - FLANK PAIN [None]
  - NASOPHARYNGITIS [None]
  - PNEUMONIA [None]
  - RIB FRACTURE [None]
